FAERS Safety Report 16384724 (Version 2)
Quarter: 2019Q3

REPORT INFORMATION
  Report Type: Spontaneous
  Country: US (occurrence: US)
  Receive Date: 20190603
  Receipt Date: 20190830
  Transmission Date: 20191004
  Serious: No
  Sender: FDA-Public Use
  Company Number: US-VIFOR (INTERNATIONAL) INC.-VIT-2019-05101

PATIENT
  Age: 54 Year
  Sex: Male
  Weight: 82 kg

DRUGS (10)
  1. VELTASSA [Suspect]
     Active Substance: PATIROMER
     Indication: HYPERKALAEMIA
     Dosage: FOUR DAYS A WEEK ON MONDAY, WEDNESDAY, FRIDAY AND SUNDAY/ ON NON-DIALYSIS DAYS
     Route: 048
     Dates: start: 2019
  2. CARVEDILOL. [Concomitant]
     Active Substance: CARVEDILOL
  3. NATEGLINIDE. [Concomitant]
     Active Substance: NATEGLINIDE
  4. AMLODIPINE [Concomitant]
     Active Substance: AMLODIPINE BESYLATE
  5. FOLIC ACID. [Concomitant]
     Active Substance: FOLIC ACID
  6. LANTUS [Concomitant]
     Active Substance: INSULIN GLARGINE
  7. ULORIC [Concomitant]
     Active Substance: FEBUXOSTAT
  8. ASPIRIN. [Concomitant]
     Active Substance: ASPIRIN
  9. AURYXIA [Concomitant]
     Active Substance: TETRAFERRIC TRICITRATE DECAHYDRATE
  10. DIALYVITE 800 [Concomitant]

REACTIONS (3)
  - Treatment noncompliance [Unknown]
  - Blood potassium increased [Not Recovered/Not Resolved]
  - Off label use [Unknown]

NARRATIVE: CASE EVENT DATE: 2019
